FAERS Safety Report 25502006 (Version 4)
Quarter: 2025Q4

REPORT INFORMATION
  Report Type: Report from Study
  Country: US (occurrence: US)
  Receive Date: 20250702
  Receipt Date: 20251217
  Transmission Date: 20260118
  Serious: Yes (Other)
  Sender: ABBVIE
  Company Number: US-ABBVIE-6347925

PATIENT
  Age: 64 Year
  Sex: Female
  Weight: 62.142 kg

DRUGS (3)
  1. RINVOQ [Suspect]
     Active Substance: UPADACITINIB
     Indication: Intestinal anastomosis
     Dosage: STRENGTH UNIT : 15 MILLIGRAM
     Route: 048
     Dates: start: 2025
  2. RINVOQ [Suspect]
     Active Substance: UPADACITINIB
     Indication: Intestinal anastomosis
     Dosage: STRENGTH UNIT : 15 MILLIGRAM
     Route: 048
     Dates: start: 2024
  3. CANASA [Concomitant]
     Active Substance: MESALAMINE
     Indication: Intestinal anastomosis

REACTIONS (14)
  - Intestinal anastomosis [Unknown]
  - Skin fissures [Recovered/Resolved]
  - Pain of skin [Recovered/Resolved]
  - Impaired healing [Recovered/Resolved]
  - Skin laceration [Recovered/Resolved]
  - Skin atrophy [Recovered/Resolved]
  - Hypotension [Not Recovered/Not Resolved]
  - Dyspnoea [Not Recovered/Not Resolved]
  - Blood iron decreased [Unknown]
  - Skin fissures [Recovered/Resolved]
  - Product residue present [Not Recovered/Not Resolved]
  - Colon injury [Unknown]
  - Rectal injury [Unknown]
  - Product quality issue [Unknown]

NARRATIVE: CASE EVENT DATE: 20040614
